FAERS Safety Report 16342047 (Version 1)
Quarter: 2019Q2

REPORT INFORMATION
  Report Type: Spontaneous
  Country: US (occurrence: US)
  Receive Date: 20190521
  Receipt Date: 20190521
  Transmission Date: 20190711
  Serious: Yes (Disabling)
  Sender: FDA-Public Use
  Company Number: None

PATIENT
  Age: 55 Year
  Sex: Female
  Weight: 49.05 kg

DRUGS (1)
  1. AIMOVIG [Suspect]
     Active Substance: ERENUMAB-AOOE
     Indication: MIGRAINE
     Dosage: ?          QUANTITY:2 INJECTION(S);OTHER FREQUENCY:PER MONTH;?
     Route: 058
     Dates: start: 20180901, end: 20190501

REACTIONS (6)
  - Impaired gastric emptying [None]
  - Arthralgia [None]
  - Abdominal pain upper [None]
  - Impaired healing [None]
  - Weight decreased [None]
  - Insomnia [None]

NARRATIVE: CASE EVENT DATE: 20190306
